FAERS Safety Report 7786602-3 (Version None)
Quarter: 2011Q3

REPORT INFORMATION
  Report Type: 
  Country: None (occurrence: None)
  Receive Date: 20110929
  Receipt Date: 20110919
  Transmission Date: 20111222
  Serious: Yes (Death, Life-Threatening, Hospitalization, Other)
  Sender: FDA-Public Use
  Company Number: US-ELI_LILLY_AND_COMPANY-US201106000526

PATIENT
  Sex: Female
  Weight: 86.168 kg

DRUGS (15)
  1. CYMBALTA [Suspect]
     Indication: NEUROPATHY PERIPHERAL
     Dosage: 60 MG, QD
     Route: 048
     Dates: start: 20110101, end: 20110401
  2. AZITHROMYCIN [Concomitant]
     Dosage: UNK
     Dates: start: 20110514, end: 20110517
  3. HEPARIN [Concomitant]
     Dosage: UNK
     Dates: start: 20110514, end: 20110517
  4. PANTOPRAZOLE [Concomitant]
     Dosage: UNK
     Dates: start: 20110514, end: 20110517
  5. HYDROCORTISONE [Concomitant]
     Dosage: 50 MG, EVERY 8 HRS
     Route: 042
  6. ADVIL LIQUI-GELS [Concomitant]
     Dosage: UNK, OTHER
     Dates: end: 20110501
  7. CYMBALTA [Suspect]
     Dosage: 120 MG
  8. CYMBALTA [Suspect]
     Dosage: 60 MG, QD
     Route: 048
     Dates: start: 20110501, end: 20110521
  9. ACETAMINOPHEN [Concomitant]
     Dosage: 500 MG, OTHER
     Dates: end: 20110501
  10. CEFTRIAXONE [Concomitant]
     Dosage: UNK
     Dates: start: 20110514, end: 20110516
  11. VANCOMYCIN [Concomitant]
     Dosage: 1 DF, UNK
     Dates: start: 20110513, end: 20110513
  12. LASIX [Concomitant]
     Dosage: 40 MG, BID
     Dates: end: 20110501
  13. KEFLEX [Concomitant]
     Dosage: 250 MG, QID
     Dates: end: 20110501
  14. PRILOSEC [Concomitant]
     Dosage: 30 MG, QD
     Dates: end: 20110501
  15. ZOSYN [Concomitant]
     Dosage: UNK
     Dates: start: 20110516

REACTIONS (8)
  - RENAL FAILURE ACUTE [None]
  - PNEUMONIA [None]
  - THROMBOCYTOPENIA [None]
  - HYPOTENSION [None]
  - MULTI-ORGAN FAILURE [None]
  - HEPATIC FUNCTION ABNORMAL [None]
  - HEPATIC FAILURE [None]
  - OFF LABEL USE [None]
